FAERS Safety Report 4817767-0 (Version None)
Quarter: 2005Q4

REPORT INFORMATION
  Report Type: 
  Country: None (occurrence: None)
  Receive Date: 20051102
  Receipt Date: 20051025
  Transmission Date: 20060501
  Serious: Yes (Hospitalization)
  Sender: FDA-Public Use
  Company Number: CA-BOEHRINGER INGELHEIM PHARMACEUTICALS, INC.-2005-UK-02167UK

PATIENT
  Sex: Female
  Weight: 54 kg

DRUGS (3)
  1. ASASANTIN RETARD (PLACEBO) [Suspect]
     Indication: CEREBROVASCULAR ACCIDENT PROPHYLAXIS
     Dosage: 50MG / 400MG
     Route: 048
     Dates: start: 20050407, end: 20050823
  2. MICARDIS (PROFESS STUDY 00015/0205/004) [Suspect]
     Indication: CEREBROVASCULAR ACCIDENT PROPHYLAXIS
     Route: 048
     Dates: start: 20050407, end: 20050823
  3. CLOPIDOGREL BISULFATE [Suspect]
     Indication: CEREBROVASCULAR ACCIDENT PROPHYLAXIS
     Route: 048
     Dates: start: 20050407, end: 20050823

REACTIONS (1)
  - RENAL IMPAIRMENT [None]
